FAERS Safety Report 8349408-2 (Version None)
Quarter: 2012Q2

REPORT INFORMATION
  Report Type: 
  Country: None (occurrence: None)
  Receive Date: 20120510
  Receipt Date: 20100816
  Transmission Date: 20120825
  Serious: No
  Sender: FDA-Public Use
  Company Number: US-TEVA-2010004426

PATIENT
  Sex: Male
  Weight: 96.248 kg

DRUGS (17)
  1. CYCLOBENZAPRINE [Concomitant]
     Indication: MUSCLE SPASMS
  2. VITAMIN C [Concomitant]
     Indication: SUPPLEMENTATION THERAPY
  3. CLONIDINE [Concomitant]
     Indication: HYPERTENSION
     Dates: start: 20090801
  4. ISOSORBIDE MONONITRATE [Concomitant]
     Indication: CARDIAC DISORDER
     Dates: start: 20050101
  5. NUVIGIL [Suspect]
     Indication: SLEEP APNOEA SYNDROME
     Route: 048
     Dates: start: 20100816
  6. NIASPAN [Concomitant]
     Indication: BLOOD CHOLESTEROL INCREASED
     Dates: start: 20090101
  7. FLUOXETIME [Concomitant]
     Indication: DEPRESSION
  8. PREVALITE [Concomitant]
     Indication: BLOOD CHOLESTEROL INCREASED
     Dates: start: 19950101
  9. LISINOPRIL [Concomitant]
     Indication: HYPERTENSION
     Dates: start: 20100501
  10. TAMSULOSIN HCL [Concomitant]
     Indication: PROSTATIC DISORDER
     Dates: start: 20100201
  11. LANTUS [Concomitant]
     Indication: DIABETES MELLITUS
     Dates: start: 19950101
  12. FISH OIL [Concomitant]
     Indication: BLOOD CHOLESTEROL INCREASED
     Dates: start: 20090101
  13. HUMALOG [Concomitant]
     Indication: DIABETES MELLITUS
     Dates: start: 19950101
  14. COZAAR [Concomitant]
     Indication: HYPERTENSION
     Dates: start: 20050101
  15. ALDACTAZIDE [Concomitant]
     Indication: HYPERTENSION
     Dates: start: 20090801
  16. AMLODIPINE [Concomitant]
     Indication: HYPERTENSION
     Dates: start: 20050101
  17. PRAVASTATIN [Concomitant]
     Indication: BLOOD CHOLESTEROL INCREASED
     Dates: start: 20100201

REACTIONS (1)
  - BLISTER [None]
